FAERS Safety Report 4832603-4 (Version None)
Quarter: 2005Q4

REPORT INFORMATION
  Report Type: 
  Country: None (occurrence: None)
  Receive Date: 20051121
  Receipt Date: 20051109
  Transmission Date: 20060501
  Serious: Yes (Hospitalization)
  Sender: FDA-Public Use
  Company Number: US-JNJFOC-20051102613

PATIENT
  Sex: Male

DRUGS (21)
  1. INFLIXIMAB [Suspect]
     Indication: RHEUMATOID ARTHRITIS
     Route: 042
  2. ASPIRIN [Concomitant]
  3. DIOVAN [Concomitant]
  4. MINOCYCLINE [Concomitant]
  5. MULTI-VITAMIN [Concomitant]
  6. MULTI-VITAMIN [Concomitant]
  7. MULTI-VITAMIN [Concomitant]
  8. MULTI-VITAMIN [Concomitant]
  9. MULTI-VITAMIN [Concomitant]
  10. MULTI-VITAMIN [Concomitant]
  11. MULTI-VITAMIN [Concomitant]
  12. MULTI-VITAMIN [Concomitant]
  13. SYNTHROID [Concomitant]
  14. VICODIN [Concomitant]
  15. VICODIN [Concomitant]
  16. PRAVACHOL [Concomitant]
  17. FOSAMAX [Concomitant]
  18. NABUMETONE [Concomitant]
  19. BIAXIN [Concomitant]
  20. PREDNISONE [Concomitant]
  21. TUMS [Concomitant]

REACTIONS (1)
  - ARTERIOSCLEROSIS [None]
